FAERS Safety Report 8098241-8 (Version None)
Quarter: 2012Q1

REPORT INFORMATION
  Report Type: 
  Country: None (occurrence: None)
  Receive Date: 20120128
  Receipt Date: 20110807
  Transmission Date: 20120608
  Serious: No
  Sender: FDA-Public Use
  Company Number: US-ABBOTT-11P-163-0844566-00

PATIENT
  Age: 39 Year
  Sex: Female

DRUGS (6)
  1. HUMIRA [Suspect]
     Indication: RHEUMATOID ARTHRITIS
     Dates: start: 20110601
  2. XANAX [Concomitant]
     Indication: ANXIETY
  3. NEURONTIN [Concomitant]
     Indication: NEUROPATHY PERIPHERAL
  4. MELOXICAM [Concomitant]
     Indication: RHEUMATOID ARTHRITIS
  5. PAMELOR [Concomitant]
     Indication: CYSTITIS INTERSTITIAL
  6. ASPIRIN [Concomitant]
     Indication: CARDIOLIPIN ANTIBODY POSITIVE
     Dosage: 81 DAILY

REACTIONS (1)
  - CONJUNCTIVITIS INFECTIVE [None]
